FAERS Safety Report 7625779-7 (Version None)
Quarter: 2011Q3

REPORT INFORMATION
  Report Type: 
  Country: None (occurrence: None)
  Receive Date: 20110721
  Receipt Date: 20110303
  Transmission Date: 20111222
  Serious: Yes (Hospitalization)
  Sender: FDA-Public Use
  Company Number: US-BAYER-2011-020740

PATIENT

DRUGS (1)
  1. LEUKINE [Suspect]

REACTIONS (1)
  - HOSPITALISATION [None]
